FAERS Safety Report 4662759-8 (Version None)
Quarter: 2005Q2

REPORT INFORMATION
  Report Type: 
  Country: None (occurrence: None)
  Receive Date: 20050512
  Receipt Date: 20050426
  Transmission Date: 20051028
  Serious: Yes (Life-Threatening, Other)
  Sender: FDA-Public Use
  Company Number: JP_050406314

PATIENT
  Age: 71 Year
  Sex: Female
  Weight: 62 kg

DRUGS (12)
  1. ONCOVIN [Suspect]
     Indication: ACUTE LYMPHOCYTIC LEUKAEMIA
     Dosage: 1.4 MG OTHER
     Route: 050
     Dates: start: 20050131, end: 20050218
  2. CYCLOPHOSPHAMIDE [Concomitant]
  3. DAUNORUBICIN HYDROCHLORIDE [Concomitant]
  4. LEUNASE (ASPARAGINASE) [Concomitant]
  5. FAMOTIDINE [Concomitant]
  6. FIRSTCIN (CEFOZOPRAN HYDROCHLORIDE) [Concomitant]
  7. ISEPACIN (ISEPAMICIN SULFATE) [Concomitant]
  8. FOY (GABEXATE MESILATE) [Concomitant]
  9. KYTRIL (GRINESTRON) [Concomitant]
  10. MAXIPIME [Concomitant]
  11. AMIKACIN [Concomitant]
  12. SULPERAZON [Concomitant]

REACTIONS (12)
  - ALANINE AMINOTRANSFERASE INCREASED [None]
  - ASPARTATE AMINOTRANSFERASE INCREASED [None]
  - BILIRUBIN CONJUGATED INCREASED [None]
  - BLOOD ALKALINE PHOSPHATASE INCREASED [None]
  - BLOOD BILIRUBIN INCREASED [None]
  - GAMMA-GLUTAMYLTRANSFERASE INCREASED [None]
  - LABORATORY TEST ABNORMAL [None]
  - LIVER DISORDER [None]
  - NEUTROPHIL COUNT DECREASED [None]
  - PLATELET COUNT DECREASED [None]
  - VENOOCCLUSIVE DISEASE [None]
  - WHITE BLOOD CELL COUNT DECREASED [None]
